FAERS Safety Report 7511398-X (Version None)
Quarter: 2011Q2

REPORT INFORMATION
  Report Type: 
  Country: None (occurrence: None)
  Receive Date: 20110531
  Receipt Date: 20110517
  Transmission Date: 20111010
  Serious: Yes (Hospitalization, Other)
  Sender: FDA-Public Use
  Company Number: US-BAYER-201038673NA

PATIENT
  Age: 30 Year
  Sex: Female

DRUGS (2)
  1. YASMIN [Suspect]
     Dosage: UNK, QD
     Route: 048
     Dates: start: 20060501, end: 20060601
  2. YASMIN [Suspect]
     Route: 048
     Dates: start: 20060401

REACTIONS (2)
  - PULMONARY EMBOLISM [None]
  - CHEST PAIN [None]
